FAERS Safety Report 20147780 (Version 1)
Quarter: 2021Q4

REPORT INFORMATION
  Report Type: Spontaneous
  Country: DE (occurrence: DE)
  Receive Date: 20211203
  Receipt Date: 20211203
  Transmission Date: 20220303
  Serious: Yes (Other)
  Sender: FDA-Public Use
  Company Number: DE-UCBSA-2021055598

PATIENT
  Sex: Male

DRUGS (1)
  1. NEUPRO [Suspect]
     Active Substance: ROTIGOTINE
     Indication: Restless legs syndrome
     Dosage: 2 MILLIGRAM
     Dates: start: 202111, end: 20211123

REACTIONS (5)
  - Restlessness [Unknown]
  - Hallucination [Unknown]
  - Delusion [Unknown]
  - Confusional state [Unknown]
  - Disorientation [Unknown]

NARRATIVE: CASE EVENT DATE: 20211101
